FAERS Safety Report 9109017 (Version 1)
Quarter: 2013Q1

REPORT INFORMATION
  Report Type: Spontaneous
  Country: US (occurrence: US)
  Receive Date: 20130222
  Receipt Date: 20130222
  Transmission Date: 20140127
  Serious: Yes (Other)
  Sender: FDA-Public Use
  Company Number: US-ELI_LILLY_AND_COMPANY-US201206009311

PATIENT
  Sex: Female

DRUGS (1)
  1. FORTEO [Suspect]
     Indication: OSTEOPOROSIS
     Dosage: 20 UG, QD
     Dates: start: 201202

REACTIONS (6)
  - Medical device complication [Unknown]
  - Nail discolouration [Unknown]
  - Pigmentation disorder [Unknown]
  - Drug ineffective [Unknown]
  - Bone density decreased [Unknown]
  - Blood testosterone decreased [Unknown]
